FAERS Safety Report 24817887 (Version 2)
Quarter: 2025Q1

REPORT INFORMATION
  Report Type: Spontaneous
  Country: JP (occurrence: JP)
  Receive Date: 20250108
  Receipt Date: 20250121
  Transmission Date: 20250408
  Serious: Yes (Life-Threatening, Hospitalization, Other)
  Sender: ALKEM
  Company Number: None

PATIENT
  Age: 40 Year
  Sex: Male
  Weight: 55.2 kg

DRUGS (4)
  1. QUETIAPINE FUMARATE [Suspect]
     Active Substance: QUETIAPINE FUMARATE
     Indication: Product used for unknown indication
     Route: 065
  2. BROMAZEPAM [Concomitant]
     Active Substance: BROMAZEPAM
     Indication: Schizophrenia
     Route: 065
  3. ESCITALOPRAM [Concomitant]
     Active Substance: ESCITALOPRAM OXALATE
     Indication: Schizophrenia
     Dosage: 10 MILLIGRAM, QD (DAILY)
     Route: 065
  4. PALIPERIDONE [Concomitant]
     Active Substance: PALIPERIDONE
     Indication: Schizophrenia
     Dosage: 6 MILLIGRAM, QD (DAILY)
     Route: 065

REACTIONS (7)
  - Status epilepticus [Unknown]
  - Electrocardiogram change [Recovering/Resolving]
  - Electrocardiogram QRS complex prolonged [Recovering/Resolving]
  - Cognitive disorder [Unknown]
  - Hypotension [Unknown]
  - Toxicity to various agents [Recovering/Resolving]
  - Intentional overdose [Unknown]
